FAERS Safety Report 9399395 (Version 2)
Quarter: 2013Q3

REPORT INFORMATION
  Report Type: Spontaneous
  Country: US (occurrence: US)
  Receive Date: 20130715
  Receipt Date: 20130807
  Transmission Date: 20140515
  Serious: Yes (Other)
  Sender: FDA-Public Use
  Company Number: US-PFIZER INC-2013202509

PATIENT
  Age: 38 Year
  Sex: Female

DRUGS (2)
  1. CHANTIX [Suspect]
     Dosage: UNK
     Dates: start: 2009
  2. CHANTIX [Suspect]
     Dosage: 1 MG (CONTINUING MONTH PACK)
     Dates: start: 20090218, end: 20090302

REACTIONS (2)
  - Loss of consciousness [Unknown]
  - Aggression [Unknown]
